FAERS Safety Report 9094318 (Version 1)
Quarter: 2013Q1

REPORT INFORMATION
  Report Type: Spontaneous
  Country: US (occurrence: None)
  Receive Date: 20130214
  Receipt Date: 20130214
  Transmission Date: 20140127
  Serious: Yes (Other)
  Sender: FDA-Public Use
  Company Number: None

PATIENT
  Age: 55 Year
  Sex: Male

DRUGS (2)
  1. PEGASYS [Suspect]
     Dosage: ONCE A WEEK
     Route: 058
     Dates: start: 20121016
  2. RIBASPHERE RIBAPAK [Suspect]
     Route: 048
     Dates: start: 20121015

REACTIONS (1)
  - Rash [None]
